FAERS Safety Report 20767880 (Version 2)
Quarter: 2022Q2

REPORT INFORMATION
  Report Type: Report from Study
  Country: US (occurrence: US)
  Receive Date: 20220429
  Receipt Date: 20220510
  Transmission Date: 20220720
  Serious: Yes (Hospitalization, Other)
  Sender: FDA-Public Use
  Company Number: US-AMGEN-USASL2022070909

PATIENT
  Age: 70 Year
  Sex: Female

DRUGS (11)
  1. ENBREL [Suspect]
     Active Substance: ETANERCEPT
     Indication: Psoriatic arthropathy
     Dosage: 25 MILLIGRAM, 2 TIMES/WK
     Route: 058
     Dates: start: 200303, end: 2021
  2. ENBREL [Suspect]
     Active Substance: ETANERCEPT
     Dosage: 25 MILLIGRAM, Q2WK
     Route: 058
     Dates: start: 2021, end: 2021
  3. ENBREL [Suspect]
     Active Substance: ETANERCEPT
     Dosage: 50 MILLIGRAM, QWK
     Route: 058
     Dates: start: 2021
  4. ENBREL [Suspect]
     Active Substance: ETANERCEPT
     Dosage: 50 MILLIGRAM, 2 TIMES/WK
     Route: 058
     Dates: start: 2022, end: 20220302
  5. NEULASTA [Concomitant]
     Active Substance: PEGFILGRASTIM
     Indication: Product used for unknown indication
     Dosage: UNK
     Route: 065
  6. TREANDA [Concomitant]
     Active Substance: BENDAMUSTINE HYDROCHLORIDE
     Indication: Product used for unknown indication
     Dosage: UNK
  7. TREANDA [Concomitant]
     Active Substance: BENDAMUSTINE HYDROCHLORIDE
     Route: 065
  8. RITUXAN [Concomitant]
     Active Substance: RITUXIMAB
     Dosage: UNK
  9. PREDNISONE [Concomitant]
     Active Substance: PREDNISONE
     Indication: Product used for unknown indication
     Dosage: 10 MILLIGRAM
  10. PREDNISONE [Concomitant]
     Active Substance: PREDNISONE
     Route: 065
  11. CELEBREX [Concomitant]
     Active Substance: CELECOXIB
     Dosage: 200 MILLIGRAM

REACTIONS (11)
  - Lymphoma [Not Recovered/Not Resolved]
  - Swelling [Not Recovered/Not Resolved]
  - Dyspnoea [Not Recovered/Not Resolved]
  - Dysphagia [Not Recovered/Not Resolved]
  - Injection site pain [Not Recovered/Not Resolved]
  - Gait disturbance [Not Recovered/Not Resolved]
  - Peripheral swelling [Not Recovered/Not Resolved]
  - Pain in extremity [Not Recovered/Not Resolved]
  - Stress [Not Recovered/Not Resolved]
  - Back pain [Not Recovered/Not Resolved]
  - Off label use [Unknown]

NARRATIVE: CASE EVENT DATE: 20220101
